FAERS Safety Report 15359553 (Version 2)
Quarter: 2018Q4

REPORT INFORMATION
  Report Type: Spontaneous
  Country: US (occurrence: US)
  Receive Date: 20180907
  Receipt Date: 20181123
  Transmission Date: 20190204
  Serious: Yes (Death, Hospitalization, Other)
  Sender: FDA-Public Use
  Company Number: US-BRISTOL-MYERS SQUIBB COMPANY-BMS-2018-083186

PATIENT
  Age: 30 Year
  Sex: Female

DRUGS (1)
  1. OPDIVO [Suspect]
     Active Substance: NIVOLUMAB
     Indication: RENAL MASS
     Dosage: 480 MG, Q4WK
     Route: 042
     Dates: start: 20180626, end: 20180723

REACTIONS (3)
  - Gastric infection [Unknown]
  - Death [Fatal]
  - Tumour necrosis [Unknown]

NARRATIVE: CASE EVENT DATE: 201808
